FAERS Safety Report 23401331 (Version 3)
Quarter: 2025Q3

REPORT INFORMATION
  Report Type: Spontaneous
  Country: EU (occurrence: EU)
  Receive Date: 20240115
  Receipt Date: 20250701
  Transmission Date: 20251020
  Serious: No
  Sender: NOVARTIS
  Company Number: EU-002147023-NVSC2024DE006226

PATIENT
  Sex: Female

DRUGS (1)
  1. KESIMPTA [Suspect]
     Active Substance: OFATUMUMAB
     Indication: Multiple sclerosis
     Dosage: UNK, QMO
     Route: 065
     Dates: start: 2023

REACTIONS (3)
  - Oral discomfort [Unknown]
  - Dysgeusia [Unknown]
  - Glossodynia [Unknown]
